FAERS Safety Report 15715649 (Version 1)
Quarter: 2018Q4

REPORT INFORMATION
  Report Type: Spontaneous
  Country: US (occurrence: US)
  Receive Date: 20181212
  Receipt Date: 20181212
  Transmission Date: 20190205
  Serious: Yes (Other)
  Sender: FDA-Public Use
  Company Number: US-TEIKOKU PHARMA USA-TPU2018-00861

PATIENT
  Age: 71 Year
  Sex: Female
  Weight: 86.26 kg

DRUGS (9)
  1. LIDOCAINE PATCH [Suspect]
     Active Substance: LIDOCAINE
     Indication: FIBROMYALGIA
     Dosage: UP TO 3 PATCHES, WHERE EVER THE PAIN IS THE WORST, SOMETIMES CUTS PATCHES INTO SMALLER PIECES AND AP
     Route: 061
  2. NORCO [Concomitant]
     Active Substance: ACETAMINOPHEN\HYDROCODONE BITARTRATE
     Indication: NEUROPATHY PERIPHERAL
     Dosage: DUE TO STRICTER RULE PATIENT WAS THEN ON 2 TABLETS A DAY, QUANTITY 40 TABLETS FOR 30 DAYS.
  3. NORCO [Concomitant]
     Active Substance: ACETAMINOPHEN\HYDROCODONE BITARTRATE
     Indication: PAIN
     Dosage: 10-325 MG, USED TO TAKE 2 TABLETS EVERY 4 HOURS, UP TO 8 A DAY
  4. LIDOCAINE PATCH [Suspect]
     Active Substance: LIDOCAINE
     Indication: SCIATICA
     Dosage: PATIENT REPORTED SHE ONCE USED 4 PATCHES ON TWISTED ANKLE, TWO ONE ON EACH SIDE, MAYBE THREE YEARS A
  5. NORCO [Concomitant]
     Active Substance: ACETAMINOPHEN\HYDROCODONE BITARTRATE
     Dosage: PATIENT REQUESTED A HIGHER AMOUNT FOR NEUROPATHY, SO THE QUANTITY FOR 30 DAY SUPPLY WAS INCREASED BA
  6. LIDOCAINE PATCH [Suspect]
     Active Substance: LIDOCAINE
     Indication: HIP FRACTURE
  7. BIO FREEZE JELLY [Concomitant]
     Indication: PAIN
  8. LIDOCAINE PATCH [Suspect]
     Active Substance: LIDOCAINE
     Indication: NEUROPATHY PERIPHERAL
  9. LIDOCAINE PATCH [Suspect]
     Active Substance: LIDOCAINE
     Indication: LIGAMENT SPRAIN

REACTIONS (11)
  - Skin lesion removal [Unknown]
  - Skin irritation [Unknown]
  - Neuropathy peripheral [Unknown]
  - Inappropriate schedule of product administration [Unknown]
  - Product use issue [Unknown]
  - Contusion [Unknown]
  - Precancerous lesion excision [Unknown]
  - Therapeutic response shortened [Unknown]
  - Incorrect dose administered [Recovered/Resolved]
  - Hip surgery [Unknown]
  - Body height decreased [Not Recovered/Not Resolved]

NARRATIVE: CASE EVENT DATE: 20181106
